FAERS Safety Report 21546795 (Version 1)
Quarter: 2022Q4

REPORT INFORMATION
  Report Type: Report from Study
  Country: US (occurrence: US)
  Receive Date: 20221103
  Receipt Date: 20221103
  Transmission Date: 20230113
  Serious: Yes (Other)
  Sender: FDA-Public Use
  Company Number: US-BRISTOL-MYERS SQUIBB COMPANY-2022-128407

PATIENT
  Age: 66 Year
  Sex: Female
  Weight: 44.45 kg

DRUGS (5)
  1. REVLIMID [Suspect]
     Active Substance: LENALIDOMIDE
     Indication: Plasma cell myeloma
     Dosage: 21 OUT OF 28 DAYS
     Route: 048
     Dates: start: 20220921
  2. ACYCLOVIR [Concomitant]
     Active Substance: ACYCLOVIR
  3. VELCADE [Concomitant]
     Active Substance: BORTEZOMIB
  4. ZOLEDRONIC ACID [Concomitant]
     Active Substance: ZOLEDRONIC ACID
  5. DEXAMETHASONE [Concomitant]
     Active Substance: DEXAMETHASONE

REACTIONS (15)
  - Constipation [Unknown]
  - Diarrhoea [Unknown]
  - Nausea [Unknown]
  - Fatigue [Unknown]
  - Insomnia [Unknown]
  - Headache [Unknown]
  - Muscle spasms [Unknown]
  - Paraesthesia [Unknown]
  - Arthralgia [Unknown]
  - Anaemia [Unknown]
  - Gingival discolouration [Unknown]
  - Haemorrhoidal haemorrhage [Unknown]
  - White blood cell count decreased [Unknown]
  - Red blood cell count decreased [Unknown]
  - Haemoglobin decreased [Unknown]
